FAERS Safety Report 9372155 (Version 1)
Quarter: 2013Q2

REPORT INFORMATION
  Report Type: Report from Study
  Country: US (occurrence: US)
  Receive Date: 20130627
  Receipt Date: 20130627
  Transmission Date: 20140414
  Serious: Yes (Death)
  Sender: FDA-Public Use
  Company Number: US-MYLANLABS-2012S1016190

PATIENT
  Age: 88 Year
  Sex: Female

DRUGS (12)
  1. CLOZAPINE TABLETS [Suspect]
     Route: 048
  2. MACROBID [Concomitant]
  3. LEVOFLOXACIN [Concomitant]
  4. LISINOPRIL [Concomitant]
  5. STALEVO [Concomitant]
  6. LORAZEPAM [Concomitant]
  7. GENERLAC [Concomitant]
  8. ZIPRASIDONE [Concomitant]
  9. OXYBUTYNIN [Concomitant]
  10. NAMENDA [Concomitant]
  11. ACTONEL [Concomitant]
  12. PANTOPRAZOLE [Concomitant]

REACTIONS (1)
  - Death [Fatal]
